FAERS Safety Report 7415538-2 (Version None)
Quarter: 2011Q2

REPORT INFORMATION
  Report Type: 
  Country: None (occurrence: None)
  Receive Date: 20110414
  Receipt Date: 20110310
  Transmission Date: 20111010
  Serious: Yes (Other)
  Sender: FDA-Public Use
  Company Number: IT-BAYER-2011-025624

PATIENT
  Age: 34 Year
  Sex: Male

DRUGS (2)
  1. SORAFENIB (RAF KINASE INHIBITOR) [Suspect]
     Dosage: 400 MG, QD
     Route: 048
     Dates: start: 20101114, end: 20110124
  2. SORAFENIB (RAF KINASE INHIBITOR) [Suspect]
     Indication: SALIVARY GLAND CANCER
     Dosage: 400 MG, BID
     Route: 048
     Dates: start: 20101004, end: 20101017

REACTIONS (2)
  - SKIN ULCER [None]
  - SOFT TISSUE NECROSIS [None]
